FAERS Safety Report 16112867 (Version 1)
Quarter: 2019Q1

REPORT INFORMATION
  Report Type: Spontaneous
  Country: CH (occurrence: CH)
  Receive Date: 20190325
  Receipt Date: 20190325
  Transmission Date: 20190418
  Serious: Yes (Other)
  Sender: FDA-Public Use
  Company Number: CH-ASTRAZENECA-2019SE45016

PATIENT
  Sex: Male
  Weight: 92 kg

DRUGS (2)
  1. METFORMIN [Concomitant]
     Active Substance: METFORMIN HYDROCHLORIDE
     Indication: DIABETES MELLITUS
  2. FASENRA [Suspect]
     Active Substance: BENRALIZUMAB
     Route: 058
     Dates: start: 201812

REACTIONS (2)
  - Vitamin B12 deficiency [Unknown]
  - Polyneuropathy [Unknown]
